FAERS Safety Report 16720514 (Version 1)
Quarter: 2019Q3

REPORT INFORMATION
  Report Type: Spontaneous
  Country: CA (occurrence: CA)
  Receive Date: 20190820
  Receipt Date: 20190820
  Transmission Date: 20191005
  Serious: Yes (Other)
  Sender: FDA-Public Use
  Company Number: CA-ALLERGAN-1933482US

PATIENT
  Sex: Male

DRUGS (3)
  1. OXYBUTYNIN PCH - BP [Suspect]
     Active Substance: OXYBUTYNIN
     Indication: CYSTITIS
  2. OXYBUTYNIN PCH - BP [Suspect]
     Active Substance: OXYBUTYNIN
     Indication: ABDOMINAL INFECTION
  3. FLUTICASONE FUROATE/UMECLIDINIUM BROMIDE/VILANTEROL TRIFENATATE [Suspect]
     Active Substance: FLUTICASONE FUROATE\UMECLIDINIUM BROMIDE\VILANTEROL TRIFENATATE
     Indication: PRODUCT USED FOR UNKNOWN INDICATION

REACTIONS (8)
  - Abdominal infection [Unknown]
  - Dysphagia [Unknown]
  - Constipation [Unknown]
  - Dry mouth [Unknown]
  - Tremor [Unknown]
  - Drug interaction [Unknown]
  - Lung disorder [Unknown]
  - Cystitis [Unknown]
